FAERS Safety Report 4879705-4 (Version None)
Quarter: 2006Q1

REPORT INFORMATION
  Report Type: 
  Country: None (occurrence: None)
  Receive Date: 20060113
  Receipt Date: 20050506
  Transmission Date: 20060701
  Serious: Yes (Other)
  Sender: FDA-Public Use
  Company Number: AU-BRISTOL-MYERS SQUIBB COMPANY-12959979

PATIENT
  Age: 36 Year
  Sex: Female
  Weight: 57 kg

DRUGS (5)
  1. CETUXIMAB [Suspect]
     Indication: COLORECTAL CANCER METASTATIC
     Dosage: 15-APR-2005 PROTOCOL THERAPY STARTED. 06-MAY-2005 (CYCLE 4) CETUXIMAB STOPPED.
     Route: 042
     Dates: start: 20050506, end: 20050506
  2. BEST SUPPORTIVE CARE [Suspect]
     Indication: COLORECTAL CANCER METASTATIC
  3. OXYCONTIN [Concomitant]
     Indication: PAIN
     Dates: start: 20050505
  4. ENDONE [Concomitant]
     Indication: PAIN
     Dates: start: 20050505
  5. OMEPRAZOLE [Concomitant]
     Indication: GASTRIC ULCER
     Dates: start: 20040101

REACTIONS (5)
  - CHEST DISCOMFORT [None]
  - CHILLS [None]
  - HYPERHIDROSIS [None]
  - HYPERSENSITIVITY [None]
  - PYREXIA [None]
